FAERS Safety Report 9860257 (Version 2)
Quarter: 2014Q1

REPORT INFORMATION
  Report Type: Report from Study
  Country: US (occurrence: US)
  Receive Date: 20140201
  Receipt Date: 20140201
  Transmission Date: 20141002
  Serious: Yes (Other)
  Sender: FDA-Public Use
  Company Number: US-IPSEN BIOPHARMACEUTICALS, INC.-2013-3085

PATIENT
  Age: 43 Year
  Sex: Female

DRUGS (8)
  1. SOMATULINE DEPOT INJECTION (90MG) [Suspect]
     Indication: ACROMEGALY
     Dosage: 90 MG
     Route: 058
     Dates: start: 20120117
  2. SOMATULINE DEPOT INJECTION (90MG) [Suspect]
     Dosage: 120 MG
     Route: 058
  3. SYNTHROID [Concomitant]
     Indication: PRODUCT USED FOR UNKNOWN INDICATION
     Route: 065
  4. AZOR [Concomitant]
     Indication: PRODUCT USED FOR UNKNOWN INDICATION
     Dosage: 5-40 MG
     Route: 065
  5. CABERGOLINE [Concomitant]
     Indication: PRODUCT USED FOR UNKNOWN INDICATION
     Route: 065
  6. LOSARTAN POTASSIUM [Concomitant]
     Indication: PRODUCT USED FOR UNKNOWN INDICATION
     Route: 065
  7. JUNEL FE [Concomitant]
     Indication: PRODUCT USED FOR UNKNOWN INDICATION
     Dosage: NOT REPORTED
     Route: 065
  8. HYDROCORTISONE [Concomitant]
     Indication: PRODUCT USED FOR UNKNOWN INDICATION
     Route: 065

REACTIONS (11)
  - Adrenal insufficiency [Unknown]
  - Chest pain [Recovered/Resolved]
  - Blood cortisol decreased [Recovered/Resolved]
  - Affect lability [Unknown]
  - Disturbance in social behaviour [Unknown]
  - Weight increased [Unknown]
  - Alopecia [Unknown]
  - Weight decreased [Unknown]
  - Asthenia [Unknown]
  - Fatigue [Unknown]
  - Drug administration error [Unknown]
